FAERS Safety Report 4945924-1 (Version None)
Quarter: 2006Q1

REPORT INFORMATION
  Report Type: 
  Country: None (occurrence: None)
  Receive Date: 20060130
  Receipt Date: 20050808
  Transmission Date: 20060701
  Serious: Yes (Hospitalization)
  Sender: FDA-Public Use
  Company Number: 8011286

PATIENT
  Age: 48 Year
  Sex: Male
  Weight: 122 kg

DRUGS (18)
  1. METOLAZONE [Suspect]
     Indication: CARDIAC DISORDER
     Dosage: 5 MG 2/D PO
     Route: 048
     Dates: start: 20041115
  2. BUMETANIDE [Suspect]
     Indication: FLUID RETENTION
     Dosage: 2 MG 2/D PO
     Route: 048
     Dates: start: 20041028
  3. NESIRITIDE [Suspect]
     Indication: CARDIAC FAILURE
     Dosage: IV
     Route: 042
     Dates: start: 20041109, end: 20041208
  4. IRBESARTAN [Suspect]
     Indication: BLOOD PRESSURE
     Dosage: 150 MG 2/D PO
     Route: 048
     Dates: start: 20040305
  5. ISOSORBIDE DINITRATE [Suspect]
     Indication: CARDIAC DISORDER
     Dosage: 5 MG 3/D PO
     Route: 048
     Dates: start: 20041029
  6. SPIRONOLACTONE [Suspect]
     Indication: CARDIAC DISORDER
     Dosage: 25 MG 1/D PO
     Route: 048
     Dates: start: 20041028
  7. CARVEDILOL [Suspect]
     Indication: CARDIAC DISORDER
     Dosage: 12.5 MG 2/D PO
     Route: 048
     Dates: start: 20040812
  8. ASPIRIN [Concomitant]
  9. CLOPIDOGREL BISULFATE [Concomitant]
  10. DIGOXIN [Concomitant]
  11. HYDROCHLOROTHIAZIDE [Concomitant]
  12. TIMENTIN [Concomitant]
  13. ROBITUSSIN [Concomitant]
  14. MIXTARD HUMAN [Concomitant]
  15. HUMULIN R [Concomitant]
  16. GABAPENTIN [Concomitant]
  17. POTASSIUM CHLORIDE [Concomitant]
  18. SERTRALINE [Concomitant]

REACTIONS (2)
  - HYPOTENSION [None]
  - SYNCOPE [None]
